FAERS Safety Report 13962105 (Version 2)
Quarter: 2018Q1

REPORT INFORMATION
  Report Type: Spontaneous
  Country: US (occurrence: US)
  Receive Date: 20170912
  Receipt Date: 20180117
  Transmission Date: 20180508
  Serious: No
  Sender: FDA-Public Use
  Company Number: US-LUNDBECK-DKLU2036380

PATIENT
  Age: 75 Year
  Sex: Female

DRUGS (4)
  1. NORTHERA [Suspect]
     Active Substance: DROXIDOPA
     Indication: PRODUCT USED FOR UNKNOWN INDICATION
     Dosage: SCHEDULE A; TURNED CUSTOMIZED
     Route: 065
     Dates: start: 20170818
  2. NORTHERA [Suspect]
     Active Substance: DROXIDOPA
     Dosage: SCHEDULE A; TURNED CUSTOMIZED
     Route: 065
     Dates: start: 20170823
  3. NORTHERA [Suspect]
     Active Substance: DROXIDOPA
     Route: 048
     Dates: start: 2017
  4. NORTHERA [Suspect]
     Active Substance: DROXIDOPA
     Route: 048
     Dates: start: 2017

REACTIONS (1)
  - Therapeutic response decreased [Unknown]

NARRATIVE: CASE EVENT DATE: 20170828
